FAERS Safety Report 24068683 (Version 1)
Quarter: 2024Q3

REPORT INFORMATION
  Report Type: Spontaneous
  Country: RU (occurrence: RU)
  Receive Date: 20240710
  Receipt Date: 20240710
  Transmission Date: 20241017
  Serious: No
  Sender: ROCHE
  Company Number: RU-ROCHE-3528484

PATIENT
  Age: 44 Year
  Sex: Female

DRUGS (1)
  1. VABYSMO [Suspect]
     Active Substance: FARICIMAB\FARICIMAB-SVOA
     Indication: Product used for unknown indication
     Route: 065

REACTIONS (10)
  - Hypopyon [Unknown]
  - Retinal vasculitis [Unknown]
  - Uveitis [Unknown]
  - Vitritis [Unknown]
  - Conjunctival haemorrhage [Unknown]
  - Pain [Unknown]
  - Photophobia [Unknown]
  - Pupillary reflex impaired [Unknown]
  - Anterior chamber inflammation [Unknown]
  - Retinal haemorrhage [Unknown]
